FAERS Safety Report 9812999 (Version 1)
Quarter: 2014Q1

REPORT INFORMATION
  Report Type: Spontaneous
  Country: US (occurrence: None)
  Receive Date: 20140109
  Receipt Date: 20140109
  Transmission Date: 20141002
  Serious: Yes (Other)
  Sender: FDA-Public Use
  Company Number: None

PATIENT
  Age: 81 Year
  Sex: Male
  Weight: 90.72 kg

DRUGS (7)
  1. RAMIPRIL [Suspect]
  2. METOPROLOL [Suspect]
  3. PRAVASTATIN [Suspect]
  4. ZETIA [Suspect]
  5. TAMSULOSIN [Suspect]
  6. FINASTERIDE [Suspect]
  7. XARELTO [Suspect]

REACTIONS (2)
  - Dysgeusia [None]
  - Product odour abnormal [None]
